FAERS Safety Report 8467436-3 (Version None)
Quarter: 2012Q2

REPORT INFORMATION
  Report Type: 
  Country: None (occurrence: None)
  Receive Date: 20120626
  Receipt Date: 20120413
  Transmission Date: 20120825
  Serious: No
  Sender: FDA-Public Use
  Company Number: US-ASTRAZENECA-2012SE00124

PATIENT
  Age: 65 Year
  Sex: Female
  Weight: 51 kg

DRUGS (16)
  1. MULTI-VITAMIN [Concomitant]
  2. CAPRELSA [Suspect]
     Indication: THYROID CANCER
     Route: 048
     Dates: start: 20111202, end: 20120210
  3. MINERAL SUPPLEMENT [Concomitant]
  4. CALCIUM [Concomitant]
  5. LOPERAMIDE [Concomitant]
  6. LORTAB [Concomitant]
  7. GLEEVEC [Concomitant]
  8. LOPRAMIDE A-D [Concomitant]
  9. IMODIUM [Concomitant]
  10. THYROID TAB [Concomitant]
  11. FISH OIL [Concomitant]
  12. ASCORBIC ACID [Concomitant]
  13. VITAMIN D [Concomitant]
  14. POTASSIUM CHLORIDE [Concomitant]
  15. HYDROCODONE BITARTRATE [Concomitant]
  16. LORAZEPAM [Concomitant]

REACTIONS (8)
  - ORAL PAIN [None]
  - FATIGUE [None]
  - ARTHRALGIA [None]
  - MUSCLE SPASMS [None]
  - DIARRHOEA [None]
  - MUSCULOSKELETAL PAIN [None]
  - JOINT SWELLING [None]
  - MYALGIA [None]
